FAERS Safety Report 8256396-6 (Version None)
Quarter: 2012Q2

REPORT INFORMATION
  Report Type: 
  Country: None (occurrence: None)
  Receive Date: 20120403
  Receipt Date: 20120321
  Transmission Date: 20120825
  Serious: Yes (Hospitalization, Other)
  Sender: FDA-Public Use
  Company Number: DE-ELI_LILLY_AND_COMPANY-DE201203006312

PATIENT
  Age: 76 Year
  Sex: Female
  Weight: 80 kg

DRUGS (5)
  1. DULOXETIME HYDROCHLORIDE [Suspect]
     Indication: STRESS URINARY INCONTINENCE
     Dosage: 2 DF, QD
     Dates: start: 20111024, end: 20111026
  2. DELIX PLUS [Concomitant]
     Dosage: 1 DF, BID
  3. AMLODIPINE BESYLATE [Concomitant]
     Dosage: 5 MG, QD
  4. ASPIRIN [Concomitant]
     Dosage: 100 MG, QD
  5. NEXIUM [Concomitant]
     Dosage: 20 MG, QD

REACTIONS (4)
  - CONFUSIONAL STATE [None]
  - LOSS OF CONSCIOUSNESS [None]
  - DEHYDRATION [None]
  - MUSCULAR WEAKNESS [None]
